FAERS Safety Report 24005925 (Version 1)
Quarter: 2024Q2

REPORT INFORMATION
  Report Type: Report from Study
  Country: CN (occurrence: CN)
  Receive Date: 20240624
  Receipt Date: 20240624
  Transmission Date: 20240716
  Serious: Yes (Other)
  Sender: FDA-Public Use
  Company Number: CN-ROCHE-10000003746

PATIENT

DRUGS (7)
  1. TECENTRIQ [Suspect]
     Active Substance: ATEZOLIZUMAB
     Indication: Hepatocellular carcinoma
     Route: 065
  2. PEMBROLIZUMAB [Suspect]
     Active Substance: PEMBROLIZUMAB
     Indication: Hepatocellular carcinoma
     Route: 065
  3. CAMRELIZUMAB [Suspect]
     Active Substance: CAMRELIZUMAB
     Indication: Hepatocellular carcinoma
     Route: 065
  4. SINTILIMAB [Suspect]
     Active Substance: SINTILIMAB
     Indication: Hepatocellular carcinoma
     Route: 065
  5. LENVATINIB [Suspect]
     Active Substance: LENVATINIB
     Indication: Hepatocellular carcinoma
     Route: 065
  6. SORAFENIB [Suspect]
     Active Substance: SORAFENIB
     Indication: Hepatocellular carcinoma
     Route: 065
  7. DONAFENIB [Suspect]
     Active Substance: DONAFENIB
     Indication: Hepatocellular carcinoma
     Route: 065

REACTIONS (56)
  - Abdominal pain [Unknown]
  - Malaise [Unknown]
  - Platelet count decreased [Unknown]
  - White blood cell count decreased [Unknown]
  - Diarrhoea [Unknown]
  - Lymphocyte count decreased [Unknown]
  - Abdominal distension [Unknown]
  - Blood bilirubin increased [Unknown]
  - Neutrophil count decreased [Unknown]
  - Rash [Unknown]
  - Decreased appetite [Unknown]
  - Aspartate aminotransferase increased [Unknown]
  - Alanine aminotransferase increased [Unknown]
  - Pyrexia [Unknown]
  - Hypertension [Unknown]
  - Palmar-plantar erythrodysaesthesia syndrome [Unknown]
  - Vomiting [Unknown]
  - Constipation [Unknown]
  - Stomatitis [Unknown]
  - Blood alkaline phosphatase increased [Unknown]
  - Duodenal ulcer [Unknown]
  - Gastric ulcer [Unknown]
  - Insomnia [Unknown]
  - Nausea [Unknown]
  - Mouth haemorrhage [Unknown]
  - Abdominal pain upper [Unknown]
  - Anaemia [Unknown]
  - Oedema peripheral [Unknown]
  - Dysphonia [Unknown]
  - Hypothyroidism [Unknown]
  - Back pain [Unknown]
  - Periodontal disease [Unknown]
  - Blood thyroid stimulating hormone increased [Unknown]
  - Vision blurred [Unknown]
  - Troponin I increased [Unknown]
  - Blood creatinine increased [Unknown]
  - Dysgeusia [Unknown]
  - Gastric perforation [Unknown]
  - Headache [Unknown]
  - Haematuria [Unknown]
  - Hypertriglyceridaemia [Unknown]
  - Non-cardiac chest pain [Unknown]
  - Pneumonitis [Unknown]
  - Laryngeal pain [Unknown]
  - Ascites [Unknown]
  - Myalgia [Unknown]
  - Epistaxis [Unknown]
  - Alopecia [Unknown]
  - Arthralgia [Unknown]
  - Arthritis [Unknown]
  - Dizziness [Unknown]
  - Gastric haemorrhage [Unknown]
  - Hyponatraemia [Unknown]
  - International normalised ratio increased [Unknown]
  - Palpitations [Unknown]
  - Pruritus [Unknown]
